FAERS Safety Report 4778084-0 (Version None)
Quarter: 2005Q3

REPORT INFORMATION
  Report Type: 
  Country: None (occurrence: None)
  Receive Date: 20050926
  Receipt Date: 20050913
  Transmission Date: 20060218
  Serious: Yes (Life-Threatening, Hospitalization, Other)
  Sender: FDA-Public Use
  Company Number: JP-JNJFOC-20050903645

PATIENT
  Sex: Female
  Weight: 46 kg

DRUGS (34)
  1. REMICADE [Suspect]
     Route: 042
  2. REMICADE [Suspect]
     Route: 042
  3. REMICADE [Suspect]
     Indication: RHEUMATOID ARTHRITIS
     Route: 042
  4. PREDNISOLONE [Suspect]
     Indication: RHEUMATOID ARTHRITIS
     Route: 048
  5. PROGRAF [Suspect]
     Indication: RHEUMATOID ARTHRITIS
     Route: 048
  6. SENNOSIDE [Concomitant]
     Route: 048
  7. VONFENAC [Concomitant]
     Indication: RHEUMATOID ARTHRITIS
  8. RHEUMATREX [Concomitant]
     Route: 048
  9. RHEUMATREX [Concomitant]
     Route: 048
  10. RHEUMATREX [Concomitant]
     Indication: RHEUMATOID ARTHRITIS
     Route: 048
  11. EURODIN [Concomitant]
     Route: 048
  12. TAKEPRON [Concomitant]
     Route: 048
  13. ISCOTIN [Concomitant]
     Route: 048
  14. ISCOTIN [Concomitant]
     Indication: TUBERCULOSIS PROPHYLAXIS
     Route: 048
  15. ACTONEL [Concomitant]
     Route: 048
  16. BACTRIM [Concomitant]
     Route: 048
  17. BACTRIM [Concomitant]
     Route: 048
  18. EPINAZION [Concomitant]
     Route: 048
  19. EBRANTIL [Concomitant]
     Route: 048
  20. ADRENAL HORMONE PREPARATIONS [Concomitant]
     Indication: RHEUMATOID ARTHRITIS
  21. PREDONINE [Concomitant]
     Indication: RHEUMATOID ARTHRITIS
     Route: 042
  22. LORCAM [Concomitant]
     Indication: RHEUMATOID ARTHRITIS
     Route: 048
  23. VOLTAREN [Concomitant]
     Indication: RHEUMATOID ARTHRITIS
     Route: 054
  24. FOLIAMIN [Concomitant]
     Route: 048
  25. GLAKAY [Concomitant]
     Route: 048
  26. CYTOTEC [Concomitant]
     Route: 048
  27. URINORM [Concomitant]
     Route: 048
  28. OPALMON [Concomitant]
     Route: 048
  29. ULCERLMIN [Concomitant]
     Route: 048
  30. PROMAC [Concomitant]
     Route: 048
  31. ELCITONIN [Concomitant]
     Route: 030
  32. THEOPHYLLINE [Concomitant]
  33. GASTER [Concomitant]
     Route: 042
  34. NEOPHAGEN [Concomitant]
     Route: 042

REACTIONS (10)
  - CONTUSION [None]
  - CYTOMEGALOVIRUS INFECTION [None]
  - DEMYELINATION [None]
  - DRUG INTERACTION [None]
  - FALL [None]
  - GUILLAIN-BARRE SYNDROME [None]
  - PARAPLEGIA [None]
  - PLEURAL EFFUSION [None]
  - PNEUMONIA ASPIRATION [None]
  - PYREXIA [None]
